FAERS Safety Report 8214855-6 (Version None)
Quarter: 2012Q1

REPORT INFORMATION
  Report Type: 
  Country: None (occurrence: None)
  Receive Date: 20120316
  Receipt Date: 20120313
  Transmission Date: 20120608
  Serious: Yes (Other)
  Sender: FDA-Public Use
  Company Number: US-SANOFI-AVENTIS-2012SA017106

PATIENT
  Sex: Female

DRUGS (8)
  1. PLAVIX [Suspect]
     Indication: STENT PLACEMENT
     Dates: start: 20040101, end: 20120303
  2. SYNTHROID [Concomitant]
     Dates: end: 20110101
  3. DYAZIDE [Concomitant]
  4. NEBIVOLOL [Concomitant]
  5. SYNTHROID [Concomitant]
  6. TYLENOL [Concomitant]
     Indication: HEADACHE
  7. ALL OTHER THERAPEUTIC PRODUCTS [Concomitant]
     Indication: CONSTIPATION
  8. PREVACID [Concomitant]

REACTIONS (8)
  - PALPITATIONS [None]
  - GASTROINTESTINAL DISORDER [None]
  - FATIGUE [None]
  - BURNING SENSATION [None]
  - CORONARY ARTERY OCCLUSION [None]
  - HEADACHE [None]
  - BLOOD PRESSURE INCREASED [None]
  - ASTHENIA [None]
